FAERS Safety Report 8884555 (Version 1)
Quarter: 2012Q4

REPORT INFORMATION
  Report Type: 
  Country: GB (occurrence: GB)
  Receive Date: 20121102
  Receipt Date: 20121102
  Transmission Date: 20130627
  Serious: Yes (Other)
  Sender: FDA-Public Use
  Company Number: GB-PFIZER INC-2012238551

PATIENT
  Age: 22 Year
  Sex: Female

DRUGS (2)
  1. CHAMPIX [Suspect]
     Indication: SMOKING CESSATION THERAPY
     Dosage: 0.5 mg, 2x/day
     Route: 048
     Dates: start: 20120925
  2. DEPO-PROVERA [Concomitant]

REACTIONS (4)
  - Pallor [Recovered/Resolved]
  - Dysphemia [Recovered/Resolved]
  - Disturbance in attention [Recovered/Resolved]
  - Nausea [Not Recovered/Not Resolved]
